FAERS Safety Report 8074486-8 (Version None)
Quarter: 2012Q1

REPORT INFORMATION
  Report Type: 
  Country: None (occurrence: None)
  Receive Date: 20120126
  Receipt Date: 20120124
  Transmission Date: 20120608
  Serious: Yes (Death)
  Sender: FDA-Public Use
  Company Number: US-CELGENEUS-163-21880-12010566

PATIENT
  Sex: Male

DRUGS (10)
  1. CELEBREX [Concomitant]
     Dosage: 400 MILLIGRAM
     Route: 048
  2. MULTI-VITAMINS [Concomitant]
     Route: 048
  3. OXYCONTIN [Concomitant]
     Dosage: 60 MILLIGRAM
     Route: 048
  4. BACTRIM [Concomitant]
     Dosage: 80 MILLIGRAM
     Route: 048
  5. ACYCLOVIR [Concomitant]
     Dosage: 200 MILLIGRAM
     Route: 048
  6. REVLIMID [Suspect]
     Indication: MULTIPLE MYELOMA
     Dosage: 15 MILLIGRAM
     Route: 048
     Dates: start: 20100128, end: 20111213
  7. FOLIC ACID [Concomitant]
     Dosage: 5 MILLIGRAM
     Route: 048
  8. OXYCODONE HCL [Concomitant]
     Dosage: 10 MILLIGRAM
     Route: 048
  9. SOLU-MEDROL [Concomitant]
     Dosage: 40 MILLIGRAM
     Route: 041
  10. VELCADE [Concomitant]
     Dosage: 3.5 MILLIGRAM
     Route: 041

REACTIONS (2)
  - MULTIPLE MYELOMA [None]
  - CEREBRAL HAEMORRHAGE [None]
